FAERS Safety Report 11156462 (Version 1)
Quarter: 2015Q2

REPORT INFORMATION
  Report Type: Spontaneous
  Country: US (occurrence: None)
  Receive Date: 20150601
  Receipt Date: 20150601
  Transmission Date: 20150821
  Serious: Yes (Other)
  Sender: FDA-Public Use
  Company Number: None

PATIENT
  Age: 52 Year
  Sex: Male
  Weight: 99.79 kg

DRUGS (2)
  1. GABAPETIN [Suspect]
     Active Substance: GABAPENTIN
     Indication: NERVE INJURY
     Route: 048
     Dates: start: 20150511, end: 20150526
  2. GABAPETIN [Suspect]
     Active Substance: GABAPENTIN
     Indication: DIABETIC NEUROPATHY
     Route: 048
     Dates: start: 20150511, end: 20150526

REACTIONS (3)
  - Hypersensitivity [None]
  - Product formulation issue [None]
  - Pain [None]

NARRATIVE: CASE EVENT DATE: 20150511
